FAERS Safety Report 14370177 (Version 2)
Quarter: 2018Q1

REPORT INFORMATION
  Report Type: Report from Study
  Country: US (occurrence: US)
  Receive Date: 20180110
  Receipt Date: 20180123
  Transmission Date: 20180509
  Serious: No
  Sender: FDA-Public Use
  Company Number: US-GILEAD-2018-0314053

PATIENT
  Age: 86 Year
  Sex: Female
  Weight: 67.57 kg

DRUGS (8)
  1. TORSEMIDE. [Concomitant]
     Active Substance: TORSEMIDE
  2. SPIRONOLACTONE. [Concomitant]
     Active Substance: SPIRONOLACTONE
  3. TYVASO [Concomitant]
     Active Substance: TREPROSTINIL
  4. REVATIO [Concomitant]
     Active Substance: SILDENAFIL CITRATE
  5. SIMVASTATIN. [Concomitant]
     Active Substance: SIMVASTATIN
  6. LEVOTHYROXINE. [Concomitant]
     Active Substance: LEVOTHYROXINE
  7. AMBRISENTAN [Suspect]
     Active Substance: AMBRISENTAN
     Indication: PRODUCT USED FOR UNKNOWN INDICATION
     Dosage: 10 MG, QD
     Route: 048
     Dates: start: 20170831
  8. ASA [Concomitant]
     Active Substance: ASPIRIN

REACTIONS (2)
  - Bronchitis [Not Recovered/Not Resolved]
  - Influenza [Unknown]

NARRATIVE: CASE EVENT DATE: 20171230
